FAERS Safety Report 16976946 (Version 1)
Quarter: 2019Q4

REPORT INFORMATION
  Report Type: Report from Study
  Country: CA (occurrence: CA)
  Receive Date: 20191030
  Receipt Date: 20191030
  Transmission Date: 20200122
  Serious: Yes (Other)
  Sender: FDA-Public Use
  Company Number: PHHY2018CA078629

PATIENT
  Age: 44 Year
  Sex: Female

DRUGS (1)
  1. GILENYA [Suspect]
     Active Substance: FINGOLIMOD HYDROCHLORIDE
     Indication: MULTIPLE SCLEROSIS
     Dosage: UNK, QD
     Route: 048

REACTIONS (7)
  - Memory impairment [Unknown]
  - Ocular discomfort [Unknown]
  - Visual impairment [Recovered/Resolved]
  - Migraine [Unknown]
  - Lymphocyte count decreased [Unknown]
  - Alopecia [Unknown]
  - Amnesia [Unknown]

NARRATIVE: CASE EVENT DATE: 20180717
